FAERS Safety Report 7965932-6 (Version None)
Quarter: 2011Q4

REPORT INFORMATION
  Report Type: 
  Country: None (occurrence: None)
  Receive Date: 20111208
  Receipt Date: 20111128
  Transmission Date: 20120403
  Serious: Yes (Death)
  Sender: FDA-Public Use
  Company Number: AT-GLAXOSMITHKLINE-B0767787A

PATIENT
  Sex: Male

DRUGS (1)
  1. VOTRIENT [Suspect]
     Indication: BLADDER CANCER
     Route: 065

REACTIONS (2)
  - OFF LABEL USE [None]
  - LUNG DISORDER [None]
